FAERS Safety Report 13825296 (Version 2)
Quarter: 2017Q3

REPORT INFORMATION
  Report Type: Spontaneous
  Country: NL (occurrence: NL)
  Receive Date: 20170802
  Receipt Date: 20170822
  Transmission Date: 20171127
  Serious: Yes (Other)
  Sender: FDA-Public Use
  Company Number: PHHY2017NL112813

PATIENT
  Sex: Male

DRUGS (3)
  1. NEVANAC [Suspect]
     Active Substance: NEPAFENAC
     Indication: POSTOPERATIVE CARE
     Dosage: UNK, QID -1ST WEEK DRIPPED 4 TIMES A DAY.
     Route: 047
     Dates: start: 20170713
  2. NEVANAC [Suspect]
     Active Substance: NEPAFENAC
     Dosage: UNK, TID- 2ND WEEK DRIPPED 3 TIMES A DAY
     Route: 047
  3. NEVANAC [Suspect]
     Active Substance: NEPAFENAC
     Dosage: 1 GTT, QD
     Route: 047

REACTIONS (3)
  - Subretinal fluid [Unknown]
  - Macular oedema [Unknown]
  - Inappropriate schedule of drug administration [Unknown]
